FAERS Safety Report 9407353 (Version 1)
Quarter: 2013Q3

REPORT INFORMATION
  Report Type: Spontaneous
  Country: FR (occurrence: FR)
  Receive Date: 20130718
  Receipt Date: 20130718
  Transmission Date: 20140515
  Serious: Yes (Hospitalization)
  Sender: FDA-Public Use
  Company Number: FR-BANPHARM-20131500

PATIENT
  Age: 30 Year
  Sex: Female

DRUGS (1)
  1. IBUPROFEN UNKNOWN PRODUCT [Suspect]
     Indication: BACK PAIN
     Dosage: 400 MG, 20 DF, IN THE TWO DAYS BEFORE ADMISSION,

REACTIONS (6)
  - Inappropriate antidiuretic hormone secretion [Unknown]
  - Pyrexia [Recovered/Resolved]
  - Arthralgia [Unknown]
  - Convulsion [Recovered/Resolved]
  - Renal failure acute [Recovering/Resolving]
  - Overdose [Unknown]
